FAERS Safety Report 7116042-1 (Version None)
Quarter: 2010Q4

REPORT INFORMATION
  Report Type: 
  Country: None (occurrence: None)
  Receive Date: 20101122
  Receipt Date: 20101110
  Transmission Date: 20110411
  Serious: Yes (Other)
  Sender: FDA-Public Use
  Company Number: US-SANOFI-AVENTIS-2010SA068873

PATIENT
  Sex: Female
  Weight: 47.62 kg

DRUGS (4)
  1. PLAVIX [Suspect]
     Route: 065
     Dates: start: 20100601
  2. PLAVIX [Suspect]
     Route: 065
     Dates: start: 20100601
  3. ASPIRIN [Concomitant]
  4. CHOLESTEROL- AND TRIGLYCERIDE REDUCERS [Concomitant]

REACTIONS (9)
  - CONTUSION [None]
  - DECREASED APPETITE [None]
  - DEPRESSED MOOD [None]
  - DIARRHOEA [None]
  - DIZZINESS [None]
  - GOUT [None]
  - HEADACHE [None]
  - PALLOR [None]
  - WEIGHT DECREASED [None]
